FAERS Safety Report 21704966 (Version 1)
Quarter: 2022Q4

REPORT INFORMATION
  Report Type: Report from Study
  Country: CO (occurrence: CO)
  Receive Date: 20221209
  Receipt Date: 20221209
  Transmission Date: 20230113
  Serious: Yes (Hospitalization)
  Sender: FDA-Public Use
  Company Number: CO-JNJFOC-20221217846

PATIENT
  Age: 68 Year
  Sex: Male
  Weight: 65 kg

DRUGS (2)
  1. APALUTAMIDE [Suspect]
     Active Substance: APALUTAMIDE
     Indication: Hormone-dependent prostate cancer
     Route: 048
     Dates: start: 20220623
  2. LEVETIRACETAM [Concomitant]
     Active Substance: LEVETIRACETAM
     Dosage: FOR 1 MONTH

REACTIONS (2)
  - Hypotension [Recovering/Resolving]
  - Seizure [Recovering/Resolving]

NARRATIVE: CASE EVENT DATE: 20221205
